FAERS Safety Report 20050687 (Version 4)
Quarter: 2021Q4

REPORT INFORMATION
  Report Type: Report from Study
  Country: NL (occurrence: NL)
  Receive Date: 20211109
  Receipt Date: 20211201
  Transmission Date: 20220303
  Serious: Yes (Hospitalization, Other)
  Sender: FDA-Public Use
  Company Number: NL-ABBVIE-21K-114-4151567-00

PATIENT
  Sex: Male

DRUGS (12)
  1. CARBIDOPA\LEVODOPA [Suspect]
     Active Substance: CARBIDOPA\LEVODOPA
     Indication: Parkinson^s disease
     Route: 050
     Dates: start: 20210803, end: 2021
  2. CARBIDOPA\LEVODOPA [Suspect]
     Active Substance: CARBIDOPA\LEVODOPA
     Dosage: MD 4.4ML, CD 4.5ML/H, ED 2.5ML
     Route: 050
     Dates: start: 2021, end: 2021
  3. CARBIDOPA\LEVODOPA [Suspect]
     Active Substance: CARBIDOPA\LEVODOPA
     Dosage: MD 4.4ML, CD 4.5ML/H, ED 2.4ML
     Route: 050
     Dates: start: 2021, end: 2021
  4. CARBIDOPA\LEVODOPA [Suspect]
     Active Substance: CARBIDOPA\LEVODOPA
     Dosage: MD 4.4ML, CD 4.6ML/H, ED 2.4ML
     Route: 050
     Dates: start: 2021, end: 2021
  5. CARBIDOPA\LEVODOPA [Suspect]
     Active Substance: CARBIDOPA\LEVODOPA
     Dosage: MD 4.6ML, CD 5.0ML/H, ED 3.0ML
     Route: 050
     Dates: start: 2021, end: 2021
  6. CARBIDOPA\LEVODOPA [Suspect]
     Active Substance: CARBIDOPA\LEVODOPA
     Dosage: MD 14.0 ML; CD 5.0 ML/H; ED 3.5 ML
     Route: 050
     Dates: start: 2021
  7. MADOPAR DISPERSIBLE [Concomitant]
     Indication: Product used for unknown indication
  8. PREGABALIN [Concomitant]
     Active Substance: PREGABALIN
     Indication: Product used for unknown indication
  9. ATORVASTATIN [Concomitant]
     Active Substance: ATORVASTATIN
     Indication: Blood cholesterol abnormal
  10. EZETIMIBE [Concomitant]
     Active Substance: EZETIMIBE
     Indication: Blood cholesterol abnormal
  11. POLYETHYLENE GLYCOLS [Concomitant]
     Active Substance: POLYETHYLENE GLYCOLS
     Indication: Abnormal faeces
  12. MOVICOLON [Concomitant]
     Active Substance: POLYETHYLENE GLYCOL 3350\POTASSIUM CHLORIDE\SODIUM BICARBONATE\SODIUM CHLORIDE
     Indication: Defaecation disorder

REACTIONS (6)
  - Heart valve incompetence [Not Recovered/Not Resolved]
  - Vascular occlusion [Not Recovered/Not Resolved]
  - Extra dose administered [Recovered/Resolved]
  - Musculoskeletal stiffness [Not Recovered/Not Resolved]
  - Parkinson^s disease [Not Recovered/Not Resolved]
  - Therapeutic product effect incomplete [Recovered/Resolved]

NARRATIVE: CASE EVENT DATE: 20210101
